FAERS Safety Report 8572860-4 (Version None)
Quarter: 2012Q3

REPORT INFORMATION
  Report Type: 
  Country: None (occurrence: None)
  Receive Date: 20120806
  Receipt Date: 20120726
  Transmission Date: 20120928
  Serious: Yes (Other)
  Sender: FDA-Public Use
  Company Number: IT-ASTRAZENECA-2012SE41214

PATIENT
  Age: 38 Year
  Sex: Female

DRUGS (3)
  1. SEROQUEL [Suspect]
     Indication: SOCIAL PHOBIA
     Route: 048
  2. PAROXETINA(PAROXETINE) [Concomitant]
  3. GABAPENTIN [Concomitant]

REACTIONS (5)
  - TRICUSPID VALVE INCOMPETENCE [None]
  - PERICARDIAL EFFUSION [None]
  - INTENTIONAL DRUG MISUSE [None]
  - PERICARDITIS [None]
  - MYOCARDITIS [None]
